FAERS Safety Report 8242991-7 (Version None)
Quarter: 2012Q1

REPORT INFORMATION
  Report Type: 
  Country: None (occurrence: None)
  Receive Date: 20120329
  Receipt Date: 20120323
  Transmission Date: 20120608
  Serious: Yes (Death)
  Sender: FDA-Public Use
  Company Number: US-PFIZER INC-2012075976

PATIENT
  Sex: Male

DRUGS (1)
  1. VFEND [Suspect]
     Indication: ACUTE MYELOID LEUKAEMIA
     Dosage: 200 MG, 1.5 TABLETS BID
     Route: 048
     Dates: start: 20120202, end: 20120318

REACTIONS (2)
  - ACUTE LEUKAEMIA [None]
  - DISEASE PROGRESSION [None]
